FAERS Safety Report 8356864-2 (Version None)
Quarter: 2012Q2

REPORT INFORMATION
  Report Type: 
  Country: None (occurrence: None)
  Receive Date: 20120514
  Receipt Date: 20101210
  Transmission Date: 20120825
  Serious: No
  Sender: FDA-Public Use
  Company Number: US-TEVA-2010005833

PATIENT
  Sex: Female

DRUGS (1)
  1. NUVIGIL [Suspect]
     Route: 048

REACTIONS (4)
  - CONFUSIONAL STATE [None]
  - DISTURBANCE IN ATTENTION [None]
  - FEELING ABNORMAL [None]
  - LETHARGY [None]
